FAERS Safety Report 7371941-0 (Version None)
Quarter: 2011Q1

REPORT INFORMATION
  Report Type: 
  Country: None (occurrence: None)
  Receive Date: 20110324
  Receipt Date: 20110321
  Transmission Date: 20110831
  Serious: Yes (Hospitalization)
  Sender: FDA-Public Use
  Company Number: FR-ROCHE-766785

PATIENT
  Sex: Male

DRUGS (5)
  1. EZETROL [Concomitant]
     Dosage: EZETROL 10 MG
  2. RIVOTRIL [Suspect]
     Route: 048
  3. KARDEGIC [Suspect]
     Route: 048
  4. TRIVASTAL [Suspect]
     Route: 048
  5. TRINIPATCH [Concomitant]
     Route: 062

REACTIONS (2)
  - SUBDURAL HAEMATOMA [None]
  - SOMNOLENCE [None]
